FAERS Safety Report 14288074 (Version 1)
Quarter: 2017Q4

REPORT INFORMATION
  Report Type: Spontaneous
  Country: US (occurrence: US)
  Receive Date: 20171215
  Receipt Date: 20171215
  Transmission Date: 20180321
  Serious: No
  Sender: FDA-Public Use
  Company Number: US-TEVA-810248ACC

PATIENT
  Sex: Female

DRUGS (1)
  1. DORZOLAMIDE W/TIMOLOL [Suspect]
     Active Substance: DORZOLAMIDE HYDROCHLORIDE\TIMOLOL MALEATE
     Indication: INTRAOCULAR PRESSURE TEST
     Dosage: DOSE STRENGTH:  2/0.5 PERCENT

REACTIONS (2)
  - Drug dose omission [Unknown]
  - Intraocular pressure increased [Not Recovered/Not Resolved]
